FAERS Safety Report 12621592 (Version 3)
Quarter: 2017Q3

REPORT INFORMATION
  Report Type: Report from Study
  Country: US (occurrence: US)
  Receive Date: 20160804
  Receipt Date: 20170703
  Transmission Date: 20171127
  Serious: No
  Sender: FDA-Public Use
  Company Number: PHEH2016US019452

PATIENT
  Sex: Female

DRUGS (1)
  1. GILENYA [Suspect]
     Active Substance: FINGOLIMOD HYDROCHLORIDE
     Indication: RELAPSING-REMITTING MULTIPLE SCLEROSIS
     Dosage: UNK
     Route: 048
     Dates: start: 20110301

REACTIONS (5)
  - Asthenia [Unknown]
  - Body temperature increased [Unknown]
  - Vertigo [Unknown]
  - Temperature intolerance [Recovering/Resolving]
  - Malaise [Unknown]

NARRATIVE: CASE EVENT DATE: 20160727
